FAERS Safety Report 8083560-1 (Version None)
Quarter: 2012Q1

REPORT INFORMATION
  Report Type: 
  Country: None (occurrence: None)
  Receive Date: 20120127
  Receipt Date: 20110117
  Transmission Date: 20120608
  Serious: No
  Sender: FDA-Public Use
  Company Number: US-ABBOTT-11P-163-0698561-00

PATIENT
  Age: 60 Year
  Sex: Male

DRUGS (5)
  1. HYDROCHLOROTHIAZIDE [Concomitant]
     Indication: DIURETIC THERAPY
  2. ASPIRIN [Concomitant]
     Indication: PRODUCT USED FOR UNKNOWN INDICATION
  3. HUMIRA [Suspect]
     Indication: PSORIASIS
     Dosage: LOADING DOSE
     Dates: start: 20110116
  4. ENDOMETHACIN [Concomitant]
     Indication: PAIN
  5. ATENOLOL [Concomitant]
     Indication: CARDIAC DISORDER

REACTIONS (2)
  - PAIN IN EXTREMITY [None]
  - JOINT SWELLING [None]
